FAERS Safety Report 11251922 (Version 1)
Quarter: 2015Q3

REPORT INFORMATION
  Report Type: Spontaneous
  Country: US (occurrence: US)
  Receive Date: 20150708
  Receipt Date: 20150708
  Transmission Date: 20151125
  Serious: No
  Sender: FDA-Public Use
  Company Number: US-ELI_LILLY_AND_COMPANY-US201206009034

PATIENT
  Sex: Female

DRUGS (2)
  1. GEMZAR [Suspect]
     Active Substance: GEMCITABINE HYDROCHLORIDE
     Indication: BREAST CANCER
     Dosage: UNK
     Dates: start: 201202
  2. PROCRIT [Concomitant]
     Active Substance: ERYTHROPOIETIN

REACTIONS (5)
  - Blood count abnormal [Unknown]
  - Groin pain [Unknown]
  - Asthenia [Not Recovered/Not Resolved]
  - Arthralgia [Unknown]
  - Blood test abnormal [Unknown]
